FAERS Safety Report 8818811 (Version 1)
Quarter: 2012Q4

REPORT INFORMATION
  Report Type: Spontaneous
  Country: US (occurrence: None)
  Receive Date: 20121004
  Receipt Date: 20121004
  Transmission Date: 20130627
  Serious: No
  Sender: FDA-Public Use
  Company Number: None

PATIENT
  Age: 59 Year
  Sex: Female
  Weight: 79.38 kg

DRUGS (1)
  1. RECLAST [Suspect]
     Indication: OSTEONECROSIS OF JAW
     Route: 042
     Dates: start: 20090709

REACTIONS (5)
  - Victim of crime [None]
  - Tooth loss [None]
  - Osteonecrosis of jaw [None]
  - Pain in jaw [None]
  - Toothache [None]
